FAERS Safety Report 11008215 (Version 1)
Quarter: 2015Q2

REPORT INFORMATION
  Report Type: Report from Study
  Country: CA (occurrence: CA)
  Receive Date: 20150410
  Receipt Date: 20150410
  Transmission Date: 20150821
  Serious: Yes (Other)
  Sender: FDA-Public Use
  Company Number: CA-AMGEN-CANSL2015033357

PATIENT
  Age: 32 Year
  Sex: Female

DRUGS (1)
  1. ENBREL [Suspect]
     Active Substance: ETANERCEPT
     Indication: RHEUMATOID ARTHRITIS
     Dosage: 50 MG, QWK
     Route: 058
     Dates: start: 2004

REACTIONS (4)
  - Inappropriate schedule of drug administration [Unknown]
  - Pregnancy [Recovered/Resolved]
  - Arthritis [Unknown]
  - Premature delivery [Recovered/Resolved]

NARRATIVE: CASE EVENT DATE: 2009
